FAERS Safety Report 5528841-8 (Version None)
Quarter: 2007Q4

REPORT INFORMATION
  Report Type: 
  Country: None (occurrence: None)
  Receive Date: 20071113
  Receipt Date: 20071113
  Transmission Date: 20080405
  Serious: No
  Sender: FDA-Public Use
  Company Number: 200715858US

PATIENT
  Age: 81 Year
  Sex: Female

DRUGS (14)
  1. APIDRA [Suspect]
     Indication: TYPE 2 DIABETES MELLITUS
     Dosage: 10 U INJ
     Route: 042
     Dates: start: 20060101
  2. APIDRA [Suspect]
     Indication: TYPE 2 DIABETES MELLITUS
     Dosage: 17 U INJ
     Route: 042
     Dates: start: 20060101
  3. APIDRA [Suspect]
     Indication: TYPE 2 DIABETES MELLITUS
     Dosage: 23 U INJ
     Route: 042
     Dates: start: 20060101
  4. OPTICLIK [Suspect]
     Indication: DIABETES MELLITUS
  5. LANTUS [Concomitant]
  6. SERTRALINE (ZOLOFT /01011401/) [Concomitant]
  7. ALLOPURINOL [Concomitant]
  8. TOPROL-XL [Concomitant]
  9. ACETYSALICYLIC ACID (ECOTRIN) [Concomitant]
  10. VITAMINS NOS (MULTI-VIT) [Concomitant]
  11. ERGOCALCIFEROL, CALCIUM CITRATE (CALCIUM CITRATE AND VITAMIN D) [Concomitant]
  12. ZINC [Concomitant]
  13. MAGNESIUM [Concomitant]
  14. GUAIFENESIN [Concomitant]

REACTIONS (3)
  - BLOOD GLUCOSE DECREASED [None]
  - BLOOD GLUCOSE INCREASED [None]
  - CONFUSIONAL STATE [None]
